FAERS Safety Report 8347819 (Version 2)
Quarter: 2012Q4

REPORT INFORMATION
  Report Type: 
  Country: FR (occurrence: FR)
  Receive Date: 20120123
  Receipt Date: 20120913
  Transmission Date: 20130627
  Serious: Yes (Hospitalization, Other)
  Sender: FDA-Public Use
  Company Number: FR-BRISTOL-MYERS SQUIBB COMPANY-16348872

PATIENT
  Age: 74 Year
  Sex: Male

DRUGS (18)
  1. TAXOL INJ [Suspect]
     Indication: LUNG SQUAMOUS CELL CARCINOMA STAGE UNSPECIFIED
     Dosage: single dose,infusion.
     Route: 042
     Dates: start: 20111103
  2. CARBOPLATINE [Suspect]
     Indication: LUNG SQUAMOUS CELL CARCINOMA STAGE UNSPECIFIED
     Dosage: Carboplatine Hospira 10 mg/mL,solution for infusion,single dose.
     Route: 042
     Dates: start: 20111103
  3. AZANTAC [Concomitant]
     Indication: PREMEDICATION
  4. POLARAMINE [Concomitant]
     Indication: PREMEDICATION
  5. ZOPHREN [Concomitant]
     Indication: PREMEDICATION
  6. NEORAL [Concomitant]
  7. SOLUPRED [Concomitant]
  8. DIAMICRON [Concomitant]
     Dosage: Diamicron ER
  9. SPIRIVA [Concomitant]
     Dosage: 1caps daily
  10. SYMBICORT [Concomitant]
     Dosage: Dose:400/12 ug, 2 doses daily
  11. TAHOR [Concomitant]
  12. PERINDOPRIL [Concomitant]
  13. FOSAMAX [Concomitant]
  14. CALCIUM + VITAMIN D [Concomitant]
  15. MOPRAL [Concomitant]
  16. ACTRAPID [Concomitant]
  17. PRIMPERAN [Concomitant]
  18. PLAVIX [Concomitant]

REACTIONS (4)
  - Neuromyopathy [Recovering/Resolving]
  - Confusional state [Unknown]
  - Cardiopulmonary failure [Recovered/Resolved]
  - Lung infection [Recovered/Resolved]
